FAERS Safety Report 17111039 (Version 1)
Quarter: 2019Q4

REPORT INFORMATION
  Report Type: Spontaneous
  Country: FR (occurrence: FR)
  Receive Date: 20191204
  Receipt Date: 20191204
  Transmission Date: 20200122
  Serious: Yes (Other)
  Sender: FDA-Public Use
  Company Number: FR-MYLANLABS-2019M1117974

PATIENT
  Age: 57 Year
  Sex: Male

DRUGS (2)
  1. TRAMADOL                           /00599202/ [Concomitant]
     Active Substance: TRAMADOL
     Indication: BACK PAIN
     Dosage: UNK (NON ADMINISTRE)
  2. TRAMADOL. [Suspect]
     Active Substance: TRAMADOL
     Indication: PRODUCT USED FOR UNKNOWN INDICATION
     Dosage: UNK (LP 2X150MG EN 1 PRISE)
     Route: 048
     Dates: start: 20190812, end: 20190812

REACTIONS (8)
  - Somnolence [Recovering/Resolving]
  - Accidental overdose [Recovered/Resolved]
  - Depressed level of consciousness [Recovering/Resolving]
  - Vomiting [Recovering/Resolving]
  - Incorrect dose administered [Recovered/Resolved]
  - Wrong drug [Recovered/Resolved]
  - Product administration error [Recovered/Resolved]
  - Nausea [Recovering/Resolving]

NARRATIVE: CASE EVENT DATE: 20190812
